FAERS Safety Report 10073774 (Version 1)
Quarter: 2014Q2

REPORT INFORMATION
  Report Type: Spontaneous
  Country: US (occurrence: US)
  Receive Date: 20140411
  Receipt Date: 20140411
  Transmission Date: 20141212
  Serious: Yes (Other)
  Sender: FDA-Public Use
  Company Number: US-ACORDA-ACO_102867_2014

PATIENT
  Sex: Female

DRUGS (2)
  1. AMPYRA [Suspect]
     Indication: MULTIPLE SCLEROSIS
     Dosage: 10 MG, BID
     Route: 048
  2. COPAXONE [Concomitant]
     Indication: PRODUCT USED FOR UNKNOWN INDICATION
     Dosage: UNK
     Route: 065
     Dates: end: 20140403

REACTIONS (16)
  - Central nervous system lesion [Unknown]
  - Disturbance in attention [Unknown]
  - Memory impairment [Unknown]
  - Frustration [Unknown]
  - Hyperreflexia [Unknown]
  - Walking aid user [Unknown]
  - Trigeminal neuralgia [Unknown]
  - Paraparesis [Unknown]
  - Osteoporosis [Unknown]
  - Depression [Unknown]
  - Postmenopause [Unknown]
  - Clumsiness [Unknown]
  - Muscle spasms [Unknown]
  - Anxiety [Unknown]
  - Multiple sclerosis relapse [Unknown]
  - Headache [Unknown]
